FAERS Safety Report 9354135 (Version 1)
Quarter: 2013Q2

REPORT INFORMATION
  Report Type: Spontaneous
  Country: US (occurrence: US)
  Receive Date: 20130618
  Receipt Date: 20130618
  Transmission Date: 20140414
  Serious: No
  Sender: FDA-Public Use
  Company Number: US-TEVA-410063USA

PATIENT
  Age: 79 Year
  Sex: Female
  Weight: 81.27 kg

DRUGS (17)
  1. QNASL [Suspect]
     Dosage: 80 UG/1/ONE PUFF/TWICE A DAY
     Dates: start: 20130531
  2. MECLIZINE [Concomitant]
     Indication: DIZZINESS
     Dosage: TWICE A DAY
     Route: 048
     Dates: start: 20130531
  3. CLONIDINE [Concomitant]
     Indication: HYPERTENSION
     Dosage: ONE A DAY
     Route: 048
  4. AMLODIPINE [Concomitant]
     Indication: HYPERTENSION
     Dosage: DAILY
     Route: 048
  5. ENALAPRILIL [Concomitant]
     Indication: HYPERTENSION
     Dosage: DAILY
     Route: 048
  6. XARELTO [Concomitant]
     Indication: ANTICOAGULANT THERAPY
     Dosage: DAILY
     Route: 048
  7. MULTAQ [Concomitant]
     Indication: ATRIAL FIBRILLATION
     Dosage: TWICE A DAY
     Route: 048
  8. METFORMIN [Concomitant]
     Indication: TYPE 2 DIABETES MELLITUS
     Dosage: DAILY
     Route: 048
  9. ECOTRIN [Concomitant]
     Indication: PROPHYLAXIS
     Dosage: DAILY
     Route: 048
  10. OSTEO BIAFLEX [Concomitant]
     Indication: VITAMIN SUPPLEMENTATION
     Dosage: DAILY
     Route: 048
  11. VITAMIN B12 [Concomitant]
     Indication: VITAMIN SUPPLEMENTATION
     Dosage: DAILY
     Route: 048
  12. TRAMADOL [Concomitant]
     Indication: ARTHRALGIA
     Dosage: 37.5/325/TWICE A DAY
     Route: 048
  13. BIOTENE [Concomitant]
     Indication: VITAMIN SUPPLEMENTATION
     Dosage: DAILY
     Route: 048
  14. POTASSIUM [Concomitant]
     Indication: MINERAL SUPPLEMENTATION
     Dosage: DAILY
     Route: 048
  15. MAGNESIUM [Concomitant]
     Indication: MINERAL SUPPLEMENTATION
     Dosage: DAILY
     Route: 048
  16. ZOCOR [Concomitant]
     Indication: HYPERCHOLESTEROLAEMIA
     Dosage: DAILY
     Route: 048
  17. LORAZEPAM [Concomitant]
     Indication: NERVOUSNESS
     Dosage: AS NEEDED
     Route: 048

REACTIONS (2)
  - Dizziness [Not Recovered/Not Resolved]
  - Ear pain [Not Recovered/Not Resolved]
